FAERS Safety Report 8745860 (Version 2)
Quarter: 2013Q4

REPORT INFORMATION
  Report Type: Report from Study
  Country: US (occurrence: US)
  Receive Date: 20120827
  Receipt Date: 20131101
  Transmission Date: 20140711
  Serious: No
  Sender: FDA-Public Use
  Company Number: US-009507513-1208USA001277

PATIENT
  Sex: Male

DRUGS (3)
  1. VICTRELIS [Suspect]
     Dosage: 200 MG, UNK
  2. REBETOL [Suspect]
     Dosage: 3 DF, BID
     Route: 048
  3. PEGASYS [Suspect]
     Dosage: 180 MICROGRAMS/0.5 ML PFS

REACTIONS (3)
  - Dyspnoea [Unknown]
  - Fatigue [Unknown]
  - Dry mouth [Unknown]
